FAERS Safety Report 9507999 (Version 1)
Quarter: 2013Q1

REPORT INFORMATION
  Report Type: Spontaneous
  Country: US (occurrence: None)
  Receive Date: 20130305
  Receipt Date: 20130305
  Transmission Date: 20140127
  Serious: Yes (Other)
  Sender: FDA-Public Use
  Company Number: 163-21880-12090146

PATIENT
  Age: 62 Year
  Sex: Male
  Weight: 81.65 kg

DRUGS (15)
  1. REVLIMID [Suspect]
     Indication: AMYLOIDOSIS
     Dosage: 10 MG, 21 IN 28 D, PO
     Route: 048
     Dates: start: 20091022
  2. ASPIRIN (ACETYLSALICYLIC ACID) (UNKNOWN) (ACETYLSALICYLIC ACID) [Concomitant]
  3. CARB/LEVO (SINEMET) (UNKNOWN) [Concomitant]
  4. COLACE (DOCUSATE SODIUM) (UNKNOWN) [Concomitant]
  5. ENALAPRIL (ENALAPRIL) (UNKNOWN) [Concomitant]
  6. FENTANYL (FENTANYL) (UNKNOWN) (FENTANYL) [Concomitant]
  7. LIPITOR (ATORVASTATIN) (UNKNOWN) [Concomitant]
  8. LYRICA (PREGABALIN) (UNKNOWN) [Concomitant]
  9. MIRALAX (MACROGOL) (UNKNOWN) [Concomitant]
  10. MIRTAZAPINE(MIRTAZAPINE) (UNKNOWN) [Concomitant]
  11. MULTIVITAMINS (MULTIVITAMINS) (UNKNOWN) [Concomitant]
  12. OXYCODONE (OXYCODONE) (UNKNOWN) (OXYCODONE) [Concomitant]
  13. PREVACID (LANSOPRAZOLE) (UNKNOWN) [Concomitant]
  14. TYLENOL (PARACETAMOL) (UNKNOWN) [Concomitant]
  15. VITAMIN D (ERGOCALCIFEROL) (UNKNOWN) [Concomitant]

REACTIONS (1)
  - Vitamin D deficiency [None]
